FAERS Safety Report 9467598 (Version 2)
Quarter: 2013Q3

REPORT INFORMATION
  Report Type: Spontaneous
  Country: US (occurrence: US)
  Receive Date: 20130821
  Receipt Date: 20130821
  Transmission Date: 20140515
  Serious: No
  Sender: FDA-Public Use
  Company Number: US-MYLANLABS-2013S1002237

PATIENT
  Age: 78 Year
  Sex: Female

DRUGS (12)
  1. LIPITOR [Suspect]
  2. EPINEPHRINE [Suspect]
  3. CODEINE [Suspect]
  4. ZOCOR [Suspect]
  5. ZETIA [Suspect]
  6. NORVASC [Suspect]
  7. LISINOPRIL [Suspect]
  8. PREVNAR [Suspect]
  9. ENALAPRIL [Suspect]
  10. COZAAR [Suspect]
  11. VICODIN [Suspect]
  12. HIDROLASE [Suspect]

REACTIONS (5)
  - Drug hypersensitivity [Unknown]
  - Fatigue [Unknown]
  - Myalgia [Unknown]
  - Abdominal pain [Unknown]
  - Nausea [Unknown]
